FAERS Safety Report 11766162 (Version 1)
Quarter: 2015Q4

REPORT INFORMATION
  Report Type: Other
  Country: DE (occurrence: DE)
  Receive Date: 20151122
  Receipt Date: 20151122
  Transmission Date: 20160304
  Serious: Yes (Other)
  Sender: FDA-Public Use
  Company Number: DE-LUPIN PHARMACEUTICALS INC.-E2B_00004133

PATIENT
  Sex: Male
  Weight: 93 kg

DRUGS (3)
  1. SIMVASTATIN. [Suspect]
     Active Substance: SIMVASTATIN
     Indication: DYSLIPIDAEMIA
     Route: 048
  2. ATORVASTATIN [Suspect]
     Active Substance: ATORVASTATIN
     Indication: DYSLIPIDAEMIA
     Route: 048
  3. FLUVASTATIN [Suspect]
     Active Substance: FLUVASTATIN SODIUM
     Indication: DYSLIPIDAEMIA
     Route: 048

REACTIONS (8)
  - Dizziness [Recovered/Resolved]
  - Vomiting [Recovered/Resolved]
  - Blood creatine phosphokinase increased [Recovered/Resolved]
  - Myoglobin blood increased [Recovered/Resolved]
  - Myalgia [Recovered/Resolved]
  - Gastrointestinal pain [Recovered/Resolved]
  - Headache [Recovered/Resolved]
  - Nausea [Recovered/Resolved]
